FAERS Safety Report 4384909-3 (Version None)
Quarter: 2004Q2

REPORT INFORMATION
  Report Type: 
  Country: None (occurrence: None)
  Receive Date: 20040621
  Receipt Date: 20040607
  Transmission Date: 20050107
  Serious: Yes (Death)
  Sender: FDA-Public Use
  Company Number: MK200406-0073-1

PATIENT
  Age: 87 Year
  Sex: Male

DRUGS (1)
  1. OPTIRAY 320 [Suspect]
     Indication: COMPUTERISED TOMOGRAM
     Dosage: 100 ML, ONCE
     Dates: start: 20040604, end: 20040604

REACTIONS (3)
  - CARDIAC ARREST [None]
  - SHOCK [None]
  - VENTRICULAR FIBRILLATION [None]
